FAERS Safety Report 16872169 (Version 1)
Quarter: 2019Q4

REPORT INFORMATION
  Report Type: Spontaneous
  Country: US (occurrence: US)
  Receive Date: 20191001
  Receipt Date: 20191001
  Transmission Date: 20200122
  Serious: No
  Sender: FDA-Public Use
  Company Number: US-ALLERGAN-1930504US

PATIENT
  Sex: Male

DRUGS (3)
  1. VYVANSE [Concomitant]
     Active Substance: LISDEXAMFETAMINE DIMESYLATE
  2. VRAYLAR [Suspect]
     Active Substance: CARIPRAZINE
     Indication: ATTENTION DEFICIT/HYPERACTIVITY DISORDER
  3. VRAYLAR [Suspect]
     Active Substance: CARIPRAZINE
     Indication: DEPRESSION

REACTIONS (1)
  - Off label use [Unknown]
